FAERS Safety Report 6967913-8 (Version None)
Quarter: 2010Q3

REPORT INFORMATION
  Report Type: 
  Country: None (occurrence: None)
  Receive Date: 20100907
  Receipt Date: 20100823
  Transmission Date: 20110219
  Serious: No
  Sender: FDA-Public Use
  Company Number: BR-US-EMD SERONO, INC.-7014745

PATIENT
  Sex: Female

DRUGS (13)
  1. REBIF [Suspect]
     Indication: RELAPSING-REMITTING MULTIPLE SCLEROSIS
     Route: 058
     Dates: start: 20080606
  2. NEUTROFER [Concomitant]
  3. LINSEED [Concomitant]
  4. LIORESAL [Concomitant]
  5. CEBRILIN [Concomitant]
  6. LEXOTAM (LEXOTAN) [Concomitant]
  7. PANTOPRAZOLE [Concomitant]
  8. ACETAMINOPHEN [Concomitant]
  9. PERIDAL [Concomitant]
  10. BESEROL [Concomitant]
  11. FLUCONAZOLE [Concomitant]
  12. NUTRICAL-D [Concomitant]
  13. BONALEN [Concomitant]

REACTIONS (6)
  - APHONIA [None]
  - COUGH [None]
  - DYSPHONIA [None]
  - GLAUCOMA [None]
  - MULTIPLE SCLEROSIS RELAPSE [None]
  - PRODUCTIVE COUGH [None]
